FAERS Safety Report 22011533 (Version 1)
Quarter: 2023Q1

REPORT INFORMATION
  Report Type: Spontaneous
  Country: DE (occurrence: DE)
  Receive Date: 20230220
  Receipt Date: 20230220
  Transmission Date: 20230417
  Serious: Yes (Hospitalization)
  Sender: FDA-Public Use
  Company Number: DE-DCGMA-23200288

PATIENT
  Age: 44 Year
  Sex: Female
  Weight: 60 kg

DRUGS (1)
  1. TRANEXAMIC ACID [Suspect]
     Active Substance: TRANEXAMIC ACID
     Indication: Platelet dysfunction
     Dosage: 2 APPLICATIONS
     Route: 065

REACTIONS (9)
  - Syncope [Unknown]
  - Respiratory distress [Unknown]
  - Dyspnoea [Unknown]
  - Skin reaction [Unknown]
  - Malaise [Unknown]
  - Chest pain [Unknown]
  - Hypersensitivity [Unknown]
  - Angioedema [Unknown]
  - Visual impairment [Unknown]

NARRATIVE: CASE EVENT DATE: 20181113
